FAERS Safety Report 9404618 (Version 2)
Quarter: 2013Q3

REPORT INFORMATION
  Report Type: Spontaneous
  Country: US (occurrence: None)
  Receive Date: 20130715
  Receipt Date: 20130829
  Transmission Date: 20140515
  Serious: Yes (Hospitalization, Other)
  Sender: FDA-Public Use
  Company Number: 1306-782

PATIENT
  Age: 70 Year
  Sex: Male
  Weight: 130.18 kg

DRUGS (7)
  1. VEGF TRAP-EYE (INJECTION) (VEGF TRAP) [Suspect]
     Indication: DIABETIC RETINAL OEDEMA
     Dosage: INTRAVITREAL?
     Dates: start: 20111231
  2. METOOPROLOL ER SUCCINATE (METOPROLOL SUCCINATE) [Concomitant]
  3. LANTUS (INSULIN GLARGINE) [Concomitant]
  4. HUMALOG (INSULIN LISPRO) [Concomitant]
  5. GABAPENTIN (GABAPENTIN) [Concomitant]
  6. HYDROCODONE / APAP )PROCET / 01554201/) [Concomitant]
  7. LOSARTAN (LOSARTAN) [Concomitant]

REACTIONS (7)
  - Cerebrovascular accident [None]
  - Cellulitis [None]
  - Abscess limb [None]
  - Oedema peripheral [None]
  - Renal failure acute [None]
  - Hemianopia homonymous [None]
  - Renal impairment [None]
